FAERS Safety Report 6327842-X (Version None)
Quarter: 2009Q3

REPORT INFORMATION
  Report Type: 
  Country: None (occurrence: None)
  Receive Date: 20090824
  Receipt Date: 20090813
  Transmission Date: 20100115
  Serious: Yes (Death, Other)
  Sender: FDA-Public Use
  Company Number: 2007-01889

PATIENT
  Age: 38 Year
  Sex: Male
  Weight: 62 kg

DRUGS (2)
  1. VELCADE [Suspect]
     Indication: MULTIPLE MYELOMA
     Dosage: 2.3MG, INTRAVENOUS
     Route: 042
     Dates: start: 20070417, end: 20070713
  2. DEXAMETHASONE [Concomitant]

REACTIONS (7)
  - BACTERIAL INFECTION [None]
  - BLOOD IMMUNOGLOBULIN D INCREASED [None]
  - HEPATIC FUNCTION ABNORMAL [None]
  - INJECTION SITE REACTION [None]
  - INJECTION SITE VASCULITIS [None]
  - PLATELET COUNT DECREASED [None]
  - PULMONARY INFARCTION [None]
